FAERS Safety Report 24990034 (Version 2)
Quarter: 2025Q1

REPORT INFORMATION
  Report Type: Spontaneous
  Country: US (occurrence: US)
  Receive Date: 20250220
  Receipt Date: 20250228
  Transmission Date: 20250409
  Serious: Yes (Other)
  Sender: BRISTOL-MYERS SQUIBB COMPANY
  Company Number: US-BRISTOL-MYERS SQUIBB COMPANY-2025-025979

PATIENT
  Age: 72 Year
  Sex: Male

DRUGS (1)
  1. LENALIDOMIDE [Suspect]
     Active Substance: LENALIDOMIDE
     Indication: Plasma cell myeloma
     Dosage: FREQ: TAKE 1 CAPSULE WHOLE BY MOUTH WITH WATER EVERY DAY ON DAYS 1-21 FOLLOWED BY 7 DAYS OFF OF TREA
     Route: 048

REACTIONS (5)
  - Scab [Recovered/Resolved]
  - Blister [Unknown]
  - Drug ineffective [Unknown]
  - Neuropathy peripheral [Unknown]
  - Plasma cell myeloma recurrent [Unknown]

NARRATIVE: CASE EVENT DATE: 20130101
